FAERS Safety Report 7392209-2 (Version None)
Quarter: 2011Q2

REPORT INFORMATION
  Report Type: 
  Country: None (occurrence: None)
  Receive Date: 20110404
  Receipt Date: 20110328
  Transmission Date: 20111010
  Serious: Yes (Death)
  Sender: FDA-Public Use
  Company Number: B0710508A

PATIENT
  Sex: Female
  Weight: 65 kg

DRUGS (21)
  1. ACARD [Concomitant]
  2. IBUPROFEN [Concomitant]
     Dosage: 600MG PER DAY
     Dates: end: 20110228
  3. BISOCARD [Concomitant]
  4. UNKNOWN DRUG [Concomitant]
  5. MAJAMIL [Concomitant]
     Dosage: 200MG PER DAY
     Dates: end: 20110228
  6. CALPEROS [Concomitant]
  7. KALDYUM [Concomitant]
  8. XANAX [Concomitant]
  9. HYDROXYZINE [Concomitant]
  10. DIGOXIN [Concomitant]
  11. ENARENAL [Concomitant]
  12. FUROSEMID [Concomitant]
  13. RANIGAST [Concomitant]
  14. SEROXAT [Suspect]
     Indication: DEPRESSION
     Dosage: 100MG PER DAY
     Route: 048
     Dates: end: 20110228
  15. ALFADIOL [Concomitant]
  16. GERIAVIT [Concomitant]
  17. KETOPROFEN [Concomitant]
     Dosage: 100MG THREE TIMES PER DAY
     Dates: end: 20110228
  18. BONIVA [Concomitant]
  19. ARTHRYL [Concomitant]
  20. SPIRONOL [Concomitant]
     Dosage: 75MG PER DAY
     Dates: end: 20110228
  21. VIT A+E [Concomitant]

REACTIONS (1)
  - GASTROINTESTINAL HAEMORRHAGE [None]
